FAERS Safety Report 4401472-9 (Version None)
Quarter: 2004Q3

REPORT INFORMATION
  Report Type: 
  Country: None (occurrence: None)
  Receive Date: 20040907
  Receipt Date: 20040519
  Transmission Date: 20050211
  Serious: No
  Sender: FDA-Public Use
  Company Number: US-BRISTOL-MYERS SQUIBB COMPANY-12591715

PATIENT
  Age: 55 Year
  Sex: Female
  Weight: 94 kg

DRUGS (2)
  1. COUMADIN [Suspect]
     Indication: PULMONARY EMBOLISM
     Dosage: DOES VALUE:3MG 5 DAY WK,ALTERN. 2 MG 2 DAY WK.DOSE CHNG 3 MG 4 DAY WK,ALT 2 MG 3 DAY WK.
     Route: 048
     Dates: start: 20010605
  2. SYNTHROID [Concomitant]

REACTIONS (3)
  - COLONOSCOPY [None]
  - HYPERTENSION [None]
  - WEIGHT INCREASED [None]
